FAERS Safety Report 5908248-1 (Version None)
Quarter: 2008Q4

REPORT INFORMATION
  Report Type: 
  Country: None (occurrence: None)
  Receive Date: 20081006
  Receipt Date: 20080929
  Transmission Date: 20090506
  Serious: Yes (Death)
  Sender: FDA-Public Use
  Company Number: US-JNJFOC-20080706485

PATIENT
  Sex: Male
  Weight: 68.04 kg

DRUGS (5)
  1. RISPERDAL [Suspect]
     Indication: AGGRESSION
     Route: 048
  2. RISPERDAL [Suspect]
     Indication: DEMENTIA
     Dosage: 0.25 MG/AM, 0.25 MG/PM AND AS NEEDED
     Route: 048
  3. LAMICTAL [Concomitant]
     Route: 065
  4. KEPPRA [Concomitant]
     Route: 048
  5. ATIVAN [Concomitant]
     Route: 065

REACTIONS (5)
  - MARCHIAFAVA-BIGNAMI DISEASE [None]
  - OVERDOSE [None]
  - PHARYNGEAL OEDEMA [None]
  - PNEUMONIA ASPIRATION [None]
  - STAPHYLOCOCCAL INFECTION [None]
